FAERS Safety Report 18218028 (Version 1)
Quarter: 2020Q3

REPORT INFORMATION
  Report Type: Spontaneous
  Country: FR (occurrence: FR)
  Receive Date: 20200901
  Receipt Date: 20200901
  Transmission Date: 20201103
  Serious: Yes (Other)
  Sender: FDA-Public Use
  Company Number: FR-PFIZER INC-2020327259

PATIENT
  Age: 6 Year
  Sex: Male

DRUGS (2)
  1. MAXILASE [Concomitant]
     Active Substance: PANCRELIPASE
  2. CHILDRENS ADVIL [Suspect]
     Active Substance: IBUPROFEN
     Indication: TONSILLITIS
     Dosage: 1 DF, 1X/DAY
     Route: 048
     Dates: start: 201801, end: 201801

REACTIONS (2)
  - Eyelid oedema [Recovered/Resolved]
  - Lip oedema [Recovered/Resolved]

NARRATIVE: CASE EVENT DATE: 201801
